FAERS Safety Report 8245557-8 (Version None)
Quarter: 2012Q1

REPORT INFORMATION
  Report Type: 
  Country: None (occurrence: None)
  Receive Date: 20120329
  Receipt Date: 20120320
  Transmission Date: 20120608
  Serious: No
  Sender: FDA-Public Use
  Company Number: US-ASTRAZENECA-2010SE61261

PATIENT
  Age: 50 Year
  Sex: Female
  Weight: 51.7 kg

DRUGS (3)
  1. OMEPRAZOLE [Suspect]
     Route: 048
  2. NEXIUM [Suspect]
     Indication: GASTROOESOPHAGEAL REFLUX DISEASE
     Route: 048
  3. CLONAZEPAM [Concomitant]

REACTIONS (8)
  - RASH [None]
  - DRUG DOSE OMISSION [None]
  - DECREASED APPETITE [None]
  - OESOPHAGEAL PAIN [None]
  - DYSPEPSIA [None]
  - GASTROOESOPHAGEAL REFLUX DISEASE [None]
  - ABDOMINAL PAIN UPPER [None]
  - DRUG INEFFECTIVE [None]
